FAERS Safety Report 9112901 (Version 2)
Quarter: 2013Q1

REPORT INFORMATION
  Report Type: Spontaneous
  Country: US (occurrence: US)
  Receive Date: 20130211
  Receipt Date: 20130320
  Transmission Date: 20140127
  Serious: Yes (Hospitalization, Other)
  Sender: FDA-Public Use
  Company Number: US-BAXTER-2013BAX002735

PATIENT
  Age: 63 Year
  Sex: Male

DRUGS (1)
  1. DIANEAL LOW CALCIUM [Suspect]
     Indication: PERITONEAL DIALYSIS
     Route: 033

REACTIONS (4)
  - Arrhythmia [Recovering/Resolving]
  - Aortic stenosis [Recovering/Resolving]
  - Heart valve incompetence [Recovered/Resolved]
  - Incision site haemorrhage [Recovered/Resolved]
